FAERS Safety Report 7780785-7 (Version None)
Quarter: 2011Q3

REPORT INFORMATION
  Report Type: 
  Country: None (occurrence: None)
  Receive Date: 20110927
  Receipt Date: 20110922
  Transmission Date: 20111222
  Serious: No
  Sender: FDA-Public Use
  Company Number: US-PFIZER INC-2011223416

PATIENT
  Sex: Female

DRUGS (4)
  1. LYRICA [Suspect]
     Indication: NEUROPATHY PERIPHERAL
  2. LYRICA [Suspect]
     Indication: HERPES ZOSTER
     Dosage: 75 MG, 2X/DAY
     Route: 048
     Dates: start: 20110801
  3. LYRICA [Suspect]
     Indication: PAIN
  4. NEURONTIN [Suspect]
     Dosage: UNK
     Dates: start: 20100101

REACTIONS (5)
  - ARTHRALGIA [None]
  - DIZZINESS [None]
  - VISION BLURRED [None]
  - DRUG INEFFECTIVE [None]
  - ALOPECIA [None]
